FAERS Safety Report 10028186 (Version 1)
Quarter: 2014Q1

REPORT INFORMATION
  Report Type: Spontaneous
  Country: GB (occurrence: GB)
  Receive Date: 20140321
  Receipt Date: 20140321
  Transmission Date: 20141002
  Serious: Yes (Other)
  Sender: FDA-Public Use
  Company Number: GB-ABBVIE-14P-167-1215096-00

PATIENT
  Age: 65 Year
  Sex: Female
  Weight: 68.9 kg

DRUGS (2)
  1. CLARITHROMYCIN [Suspect]
     Indication: RESPIRATORY TRACT CONGESTION
     Route: 048
     Dates: start: 20140224, end: 20140301
  2. PARACETAMOL [Concomitant]
     Indication: PRODUCT USED FOR UNKNOWN INDICATION

REACTIONS (8)
  - Back pain [Not Recovered/Not Resolved]
  - Disturbance in attention [Unknown]
  - Thirst [Unknown]
  - Insomnia [Not Recovered/Not Resolved]
  - Abnormal dreams [Not Recovered/Not Resolved]
  - Decreased appetite [Recovering/Resolving]
  - Dry mouth [Unknown]
  - Tremor [Not Recovered/Not Resolved]
